FAERS Safety Report 24639733 (Version 1)
Quarter: 2024Q4

REPORT INFORMATION
  Report Type: Spontaneous
  Country: US (occurrence: US)
  Receive Date: 20241119
  Receipt Date: 20241119
  Transmission Date: 20250115
  Serious: Yes (Hospitalization, Other)
  Sender: UCB
  Company Number: US-UCBSA-2024059711

PATIENT
  Sex: Male
  Weight: 83.91 kg

DRUGS (1)
  1. BIMZELX [Suspect]
     Active Substance: BIMEKIZUMAB-BKZX
     Indication: Dermatitis atopic
     Dosage: 320 MILLIGRAM, EV 4 WEEKS
     Dates: start: 202406

REACTIONS (2)
  - Knee arthroplasty [Unknown]
  - Off label use [Unknown]
